FAERS Safety Report 14337871 (Version 4)
Quarter: 2018Q1

REPORT INFORMATION
  Report Type: Spontaneous
  Country: GB (occurrence: GB)
  Receive Date: 20171229
  Receipt Date: 20180208
  Transmission Date: 20180509
  Serious: Yes (Other)
  Sender: FDA-Public Use
  Company Number: GB-TEVA-2017-GB-837437

PATIENT

DRUGS (1)
  1. PRAMIPEXOLE DIHYDROCHLORIDE. [Suspect]
     Active Substance: PRAMIPEXOLE DIHYDROCHLORIDE
     Indication: RESTLESS LEGS SYNDROME
     Dosage: 3 DOSAGE FORMS DAILY; 3 DF, QD (4-5 YEARS)
     Route: 065

REACTIONS (7)
  - Product use in unapproved indication [Unknown]
  - Depression [Unknown]
  - Suicidal ideation [Unknown]
  - Compulsions [Unknown]
  - Self-injurious ideation [Unknown]
  - Gambling disorder [Unknown]
  - Crying [Unknown]
